FAERS Safety Report 24418113 (Version 4)
Quarter: 2025Q1

REPORT INFORMATION
  Report Type: Spontaneous
  Country: US (occurrence: US)
  Receive Date: 20241009
  Receipt Date: 20250313
  Transmission Date: 20250409
  Serious: No
  Sender: SUNOVION
  Company Number: US-SUMITOMO PHARMA SWITZERLAND GMBH-2024SPA003506

PATIENT

DRUGS (2)
  1. GEMTESA [Suspect]
     Active Substance: VIBEGRON
     Dosage: UNK UNK, QD
     Route: 048
     Dates: start: 202405, end: 202412
  2. GEMTESA [Suspect]
     Active Substance: VIBEGRON
     Dosage: HALF DOSE, QD
     Route: 048
     Dates: start: 20241224

REACTIONS (5)
  - Lip swelling [Unknown]
  - Dysuria [Unknown]
  - Eye swelling [Unknown]
  - Hot flush [Recovered/Resolved]
  - Incorrect dose administered [Unknown]

NARRATIVE: CASE EVENT DATE: 20241224
